FAERS Safety Report 5768183-9 (Version None)
Quarter: 2008Q2

REPORT INFORMATION
  Report Type: 
  Country: None (occurrence: None)
  Receive Date: 20080612
  Receipt Date: 20080604
  Transmission Date: 20081010
  Serious: Yes (Other)
  Sender: FDA-Public Use
  Company Number: JP-ABBOTT-08P-087-0456495-00

PATIENT
  Age: 19 Year
  Sex: Male

DRUGS (2)
  1. SEVOFLURANE [Suspect]
     Indication: STATUS ASTHMATICUS
     Dosage: NOT REPORTED
     Route: 055
  2. DORIPENEM [Concomitant]
     Indication: ANTIBIOTIC THERAPY
     Dosage: NOT REPORTED
     Route: 065

REACTIONS (1)
  - ENCEPHALOPATHY [None]
